FAERS Safety Report 6692518-6 (Version None)
Quarter: 2010Q2

REPORT INFORMATION
  Report Type: 
  Country: None (occurrence: None)
  Receive Date: 20100422
  Receipt Date: 20100416
  Transmission Date: 20101027
  Serious: Yes (Other)
  Sender: FDA-Public Use
  Company Number: B0648246A

PATIENT
  Sex: Male

DRUGS (4)
  1. VENTOLIN [Suspect]
     Indication: ASTHMA
     Dosage: 100MCG AS REQUIRED
     Route: 055
  2. QVAR 40 [Concomitant]
     Route: 055
  3. SIMVASTATIN [Concomitant]
     Route: 065
  4. OLANZAPINE [Concomitant]
     Route: 065

REACTIONS (1)
  - ATRIOVENTRICULAR BLOCK FIRST DEGREE [None]
